FAERS Safety Report 5601701-X (Version None)
Quarter: 2008Q1

REPORT INFORMATION
  Report Type: 
  Country: None (occurrence: None)
  Receive Date: 20080124
  Receipt Date: 20080118
  Transmission Date: 20080703
  Serious: Yes (Hospitalization)
  Sender: FDA-Public Use
  Company Number: CH-AVENTIS-200720578GDDC

PATIENT
  Age: 66 Year
  Sex: Female

DRUGS (5)
  1. DOCETAXEL [Suspect]
     Route: 042
     Dates: start: 20071107, end: 20071107
  2. CISPLATIN [Suspect]
     Route: 042
     Dates: start: 20071017, end: 20071017
  3. CETUXIMAB [Suspect]
     Route: 042
     Dates: start: 20071017, end: 20071017
  4. CETUXIMAB [Suspect]
     Route: 042
     Dates: end: 20071107
  5. CARBOPLATIN [Suspect]
     Route: 042
     Dates: start: 20071107, end: 20071107

REACTIONS (1)
  - ACUTE FEBRILE NEUTROPHILIC DERMATOSIS [None]
